FAERS Safety Report 25981262 (Version 2)
Quarter: 2025Q4

REPORT INFORMATION
  Report Type: Spontaneous
  Country: US (occurrence: US)
  Receive Date: 20251030
  Receipt Date: 20251119
  Transmission Date: 20260117
  Serious: No
  Sender: LUNDBECK
  Company Number: US-LUNDBECK-DKLU4021147

PATIENT
  Age: 43 Year
  Sex: Female
  Weight: 86.636 kg

DRUGS (1)
  1. VYEPTI [Suspect]
     Active Substance: EPTINEZUMAB-JJMR
     Indication: Migraine
     Dosage: 100 MILLIGRAM
     Route: 041
     Dates: start: 20251020, end: 20251020

REACTIONS (3)
  - Lip swelling [Recovered/Resolved]
  - Chest discomfort [Recovered/Resolved]
  - Infusion site rash [Recovered/Resolved]

NARRATIVE: CASE EVENT DATE: 20251001
